FAERS Safety Report 21540286 (Version 1)
Quarter: 2022Q4

REPORT INFORMATION
  Report Type: Report from Study
  Country: US (occurrence: US)
  Receive Date: 20221102
  Receipt Date: 20221102
  Transmission Date: 20230112
  Serious: Yes (Hospitalization, Other)
  Sender: FDA-Public Use
  Company Number: US-BRISTOL-MYERS SQUIBB COMPANY-2022-105662

PATIENT
  Age: 74 Year
  Sex: Male
  Weight: 90.08 kg

DRUGS (11)
  1. REVLIMID [Suspect]
     Active Substance: LENALIDOMIDE
     Indication: Plasma cell myeloma
     Dosage: ONCE DAILY ON DAYS 1 THROUGH 21 DAYS CYCLE??BATCH NUMBER (A3774A) AND EXPIRY DATE (30-SEP-2024)
     Route: 048
     Dates: start: 20220510
  2. DEXAMETHASONE [Concomitant]
     Active Substance: DEXAMETHASONE
     Indication: Product used for unknown indication
  3. LISINOPRIL [Concomitant]
     Active Substance: LISINOPRIL
     Indication: Product used for unknown indication
  4. ASPIRIN [Concomitant]
     Active Substance: ASPIRIN
     Indication: Product used for unknown indication
     Dosage: EC
  5. TURMERIC PLUS [Concomitant]
     Indication: Product used for unknown indication
  6. TURMERIC PLUS [Concomitant]
  7. ROCOZ [QUETIAPINE FUMARATE] [Concomitant]
     Indication: Product used for unknown indication
  8. CELIN [ASCORBIC ACID] [Concomitant]
     Indication: Product used for unknown indication
  9. FISH OIL [Concomitant]
     Active Substance: FISH OIL
     Indication: Product used for unknown indication
  10. OXYCODONE HYDROCHLORIDE [Concomitant]
     Active Substance: OXYCODONE HYDROCHLORIDE
     Indication: Product used for unknown indication
  11. PREGABALIN [Concomitant]
     Active Substance: PREGABALIN
     Indication: Product used for unknown indication

REACTIONS (3)
  - Spinal fracture [Unknown]
  - Dyspnoea [Unknown]
  - Product availability issue [Unknown]
